FAERS Safety Report 26059693 (Version 1)
Quarter: 2025Q4

REPORT INFORMATION
  Report Type: Spontaneous
  Country: CA (occurrence: CA)
  Receive Date: 20251118
  Receipt Date: 20251118
  Transmission Date: 20260117
  Serious: Yes (Other)
  Sender: AMGEN
  Company Number: CA-AMGEN-CANSP2025224150

PATIENT

DRUGS (2)
  1. BEVACIZUMAB [Suspect]
     Active Substance: BEVACIZUMAB
     Indication: Colorectal cancer metastatic
     Dosage: UNK
     Route: 065
  2. PANITUMUMAB [Suspect]
     Active Substance: PANITUMUMAB
     Indication: Colorectal cancer metastatic
     Dosage: UNK
     Route: 065

REACTIONS (29)
  - Neuropathy peripheral [Unknown]
  - Memory impairment [Unknown]
  - Depression [Unknown]
  - Nausea [Unknown]
  - Vomiting [Unknown]
  - Diarrhoea [Unknown]
  - Constipation [Unknown]
  - Bowel movement irregularity [Unknown]
  - Anxiety [Unknown]
  - Pain [Unknown]
  - Sexual dysfunction [Unknown]
  - Skin disorder [Unknown]
  - Decreased appetite [Unknown]
  - Alopecia [Unknown]
  - Multi-organ disorder [Unknown]
  - Loss of personal independence in daily activities [Unknown]
  - Haemorrhage [Unknown]
  - Disturbance in attention [Unknown]
  - Dyspnoea [Unknown]
  - Insomnia [Unknown]
  - Fatigue [Unknown]
  - Reproductive tract disorder [Unknown]
  - General symptom [Unknown]
  - Exercise tolerance decreased [Unknown]
  - Gait disturbance [Unknown]
  - Tension [Unknown]
  - Irritability [Unknown]
  - Asthenia [Unknown]
  - Depressed mood [Unknown]
